FAERS Safety Report 6072015-1 (Version None)
Quarter: 2009Q1

REPORT INFORMATION
  Report Type: 
  Country: None (occurrence: None)
  Receive Date: 20090205
  Receipt Date: 20090205
  Transmission Date: 20090719
  Serious: No
  Sender: FDA-Public Use
  Company Number: None

PATIENT
  Sex: Female
  Weight: 53.5244 kg

DRUGS (3)
  1. LYRICA [Suspect]
     Indication: NERVOUS SYSTEM DISORDER
     Dosage: 75MGS  2 X DAY PO
     Route: 048
     Dates: start: 20080810, end: 20081212
  2. LYRICA [Suspect]
     Indication: POSTOPERATIVE CARE
     Dosage: 75MGS  2 X DAY PO
     Route: 048
     Dates: start: 20080810, end: 20081212
  3. LYRICA [Suspect]
     Indication: RHEUMATOID ARTHRITIS
     Dosage: 75MGS  2 X DAY PO
     Route: 048
     Dates: start: 20080810, end: 20081212

REACTIONS (8)
  - ACTIVITIES OF DAILY LIVING IMPAIRED [None]
  - CONFUSIONAL STATE [None]
  - DISORIENTATION [None]
  - DIZZINESS [None]
  - DRUG DOSE OMISSION [None]
  - HYPOAESTHESIA [None]
  - HYPOAESTHESIA ORAL [None]
  - NAUSEA [None]
